FAERS Safety Report 25615373 (Version 1)
Quarter: 2025Q3

REPORT INFORMATION
  Report Type: Spontaneous
  Country: CA (occurrence: CA)
  Receive Date: 20250729
  Receipt Date: 20250729
  Transmission Date: 20251021
  Serious: Yes (Other)
  Sender: JOHNSON AND JOHNSON
  Company Number: CA-JNJFOC-20250731090

PATIENT
  Age: 19 Year
  Sex: Female

DRUGS (1)
  1. USTEKINUMAB [Suspect]
     Active Substance: USTEKINUMAB
     Indication: Colitis ulcerative
     Route: 058

REACTIONS (5)
  - Haematochezia [Unknown]
  - Blood pressure increased [Unknown]
  - Diarrhoea [Unknown]
  - Heart rate increased [Unknown]
  - Off label use [Unknown]
